FAERS Safety Report 23068310 (Version 3)
Quarter: 2023Q4

REPORT INFORMATION
  Report Type: Spontaneous
  Country: AR (occurrence: AR)
  Receive Date: 20231016
  Receipt Date: 20231128
  Transmission Date: 20240110
  Serious: No
  Sender: FDA-Public Use
  Company Number: AR-PFIZER INC-PV202300158631

PATIENT
  Age: 8 Year
  Sex: Female

DRUGS (2)
  1. GENOTROPIN [Suspect]
     Active Substance: SOMATROPIN
     Indication: Short stature
     Dosage: 1 TO 1.4MG, 6 TIMES PER WEEK
     Dates: start: 20200508
  2. GENOTROPIN [Suspect]
     Active Substance: SOMATROPIN
     Dosage: 1 TO 1.4MG, ALTERNATE DAY

REACTIONS (3)
  - Off label use [Unknown]
  - Device mechanical issue [Unknown]
  - Device deployment issue [Unknown]
